FAERS Safety Report 4686460-X (Version None)
Quarter: 2005Q2

REPORT INFORMATION
  Report Type: 
  Country: None (occurrence: None)
  Receive Date: 20050606
  Receipt Date: 20050524
  Transmission Date: 20051028
  Serious: Yes (Disabling)
  Sender: FDA-Public Use
  Company Number: 2005078288

PATIENT
  Age: 77 Year
  Sex: Female

DRUGS (11)
  1. CLINDAMYCIN HYDROCHLORIDE [Suspect]
     Dosage: 900 MG (300 MG 3 IN 1 D) ORAL
     Route: 048
     Dates: start: 20040714, end: 20040728
  2. CIPROFLOXACIN [Suspect]
     Dosage: 1000MG (500 MG 2 IN 1 D) ORAL
     Route: 048
     Dates: start: 20040714, end: 20040719
  3. RAMIPRIL [Concomitant]
  4. FOLACIN (CALCIUM PHOSPHATE, FOLIC ACID) [Concomitant]
  5. ALVEDON (PARACETAMOL) [Concomitant]
  6. GLUCOPHAGE [Concomitant]
  7. PEHEPAN (CYANCOBALAMIN [Concomitant]
  8. LAXOBERAL (SODIUM PICOSULFATE) [Concomitant]
  9. LAKTULOS (LACTULOSE) [Concomitant]
  10. TRADOLAN (TRAMADOL HYDROCHLORIDE) [Concomitant]
  11. ZOPICLONE (ZOPICLONE) [Concomitant]

REACTIONS (5)
  - DRY MOUTH [None]
  - SWOLLEN TONGUE [None]
  - TOOTH DISORDER [None]
  - TOOTH FRACTURE [None]
  - TREMOR [None]
